FAERS Safety Report 5090483-9 (Version None)
Quarter: 2006Q3

REPORT INFORMATION
  Report Type: 
  Country: None (occurrence: None)
  Receive Date: 20060828
  Receipt Date: 20060512
  Transmission Date: 20061208
  Serious: No
  Sender: FDA-Public Use
  Company Number: US-GLAXOSMITHKLINE-A0605436A

PATIENT
  Age: 42 Year
  Sex: Male

DRUGS (7)
  1. WELLBUTRIN XL [Suspect]
     Indication: DEPRESSION
     Dosage: 150MG PER DAY
     Route: 048
     Dates: end: 20060508
  2. CLONAZEPAM [Concomitant]
  3. LORAZEPAM [Concomitant]
  4. AMBIEN [Concomitant]
  5. ZOLOFT [Concomitant]
  6. PROTONIX [Concomitant]
  7. ATENOLOL [Concomitant]

REACTIONS (5)
  - ANXIETY [None]
  - EATING DISORDER [None]
  - FEELING ABNORMAL [None]
  - HYPERSOMNIA [None]
  - NAUSEA [None]
